FAERS Safety Report 4886799-9 (Version None)
Quarter: 2006Q1

REPORT INFORMATION
  Report Type: 
  Country: None (occurrence: None)
  Receive Date: 20060120
  Receipt Date: 20051209
  Transmission Date: 20060701
  Serious: Yes (Hospitalization)
  Sender: FDA-Public Use
  Company Number: IE-BRISTOL-MYERS SQUIBB COMPANY-13211081

PATIENT
  Age: 63 Year
  Sex: Male
  Weight: 76 kg

DRUGS (4)
  1. ABILIFY [Suspect]
     Indication: SCHIZOPHRENIA, PARANOID TYPE
     Route: 048
     Dates: start: 20051107, end: 20051207
  2. ABILIFY [Suspect]
     Indication: AGITATION
     Route: 048
     Dates: start: 20051107, end: 20051207
  3. OLANZAPINE [Concomitant]
     Indication: SCHIZOPHRENIA, PARANOID TYPE
     Route: 048
     Dates: end: 20051128
  4. OLANZAPINE [Concomitant]
     Indication: AGITATION
     Route: 048
     Dates: end: 20051128

REACTIONS (3)
  - BLOOD PRESSURE INCREASED [None]
  - CONFUSIONAL STATE [None]
  - DISORIENTATION [None]
